FAERS Safety Report 6969520-X (Version None)
Quarter: 2010Q3

REPORT INFORMATION
  Report Type: 
  Country: None (occurrence: None)
  Receive Date: 20100907
  Receipt Date: 20100907
  Transmission Date: 20110219
  Serious: Yes (Other)
  Sender: FDA-Public Use
  Company Number: None

PATIENT
  Sex: Male

DRUGS (1)
  1. HUMIRA [Suspect]
     Indication: PSORIASIS
     Dosage: 40 MG EVERY OTHER WEEK SQ
     Route: 058
     Dates: start: 20091110, end: 20100903

REACTIONS (1)
  - HERPES ZOSTER [None]
